FAERS Safety Report 5317869-9 (Version None)
Quarter: 2007Q2

REPORT INFORMATION
  Report Type: 
  Country: None (occurrence: None)
  Receive Date: 20070430
  Receipt Date: 20070413
  Transmission Date: 20071010
  Serious: Yes (Hospitalization, Other)
  Sender: FDA-Public Use
  Company Number: 2007RR-06956

PATIENT
  Age: 83 Year
  Sex: Male

DRUGS (6)
  1. FRUSEMIDE (FRUSEMIDE) UNKNOWN [Suspect]
     Indication: CARDIAC FAILURE CHRONIC
     Dosage: 40 MG, QD
  2. XIPAMIDE ( XIPAMIDE) [Suspect]
     Indication: DRUG USE FOR UNKNOWN INDICATION
     Dosage: 20 MG, QD
  3. RAMIPRIL [Concomitant]
  4. DIGITOXIN TAB [Concomitant]
  5. ALLOPURINOL [Concomitant]
  6. HYDROXCARBAMIDE [Concomitant]

REACTIONS (4)
  - ANAEMIA [None]
  - BLOOD POTASSIUM INCREASED [None]
  - CARDIAC ENZYMES INCREASED [None]
  - RENAL FAILURE [None]
